FAERS Safety Report 18982012 (Version 1)
Quarter: 2021Q1

REPORT INFORMATION
  Report Type: Spontaneous
  Country: AU (occurrence: AU)
  Receive Date: 20210308
  Receipt Date: 20210308
  Transmission Date: 20210420
  Serious: Yes (Death, Hospitalization)
  Sender: FDA-Public Use
  Company Number: AU-ORGANON-2102AUS005904

PATIENT
  Age: 33 Year
  Sex: Female

DRUGS (16)
  1. PREGABALIN. [Suspect]
     Active Substance: PREGABALIN
     Dosage: UNK
     Dates: start: 20180509, end: 201805
  2. DIAZEPAM. [Suspect]
     Active Substance: DIAZEPAM
     Dosage: UNK
     Dates: start: 20180523
  3. ONDANSETRON [Suspect]
     Active Substance: ONDANSETRON
     Dosage: UNK
  4. ENDONE [Suspect]
     Active Substance: OXYCODONE HYDROCHLORIDE
  5. PREGABALIN. [Suspect]
     Active Substance: PREGABALIN
     Dosage: 300 MILLIGRAM
     Route: 048
  6. TEMAZEPAM. [Suspect]
     Active Substance: TEMAZEPAM
     Dosage: UNK
  7. MIRTAZAPINE. [Suspect]
     Active Substance: MIRTAZAPINE
     Dosage: UNK
  8. DIAZEPAM. [Suspect]
     Active Substance: DIAZEPAM
     Dosage: UNK
     Dates: start: 20180509, end: 201805
  9. PREGABALIN. [Suspect]
     Active Substance: PREGABALIN
     Dosage: UNK
     Route: 048
     Dates: start: 201805
  10. LYRICA [Suspect]
     Active Substance: PREGABALIN
  11. STILNOX [Suspect]
     Active Substance: ZOLPIDEM TARTRATE
  12. PREGABALIN. [Suspect]
     Active Substance: PREGABALIN
     Dosage: UNK
     Route: 048
     Dates: start: 201805
  13. DOLASED [Suspect]
     Active Substance: ACETAMINOPHEN\CODEINE PHOSPHATE\DOXYLAMINE SUCCINATE
     Dosage: UNK
  14. MS CONTIN [Suspect]
     Active Substance: MORPHINE SULFATE
     Dosage: UNK
  15. OXAZEPAM. [Suspect]
     Active Substance: OXAZEPAM
     Dosage: UNK
  16. MERSYNDOL [CODEINE PHOSPHATE;DOXYLAMINE SUCCINATE;PARACETAMOL] [Suspect]
     Active Substance: ACETAMINOPHEN\CODEINE PHOSPHATE\DOXYLAMINE SUCCINATE
     Dosage: UNK

REACTIONS (4)
  - Surgery [Unknown]
  - Overdose [Unknown]
  - Toxicity to various agents [Fatal]
  - Pain [Unknown]

NARRATIVE: CASE EVENT DATE: 201705
